FAERS Safety Report 10730510 (Version 2)
Quarter: 2015Q1

REPORT INFORMATION
  Report Type: Spontaneous
  Country: US (occurrence: US)
  Receive Date: 20150122
  Receipt Date: 20150213
  Transmission Date: 20150721
  Serious: Yes (Hospitalization, Other)
  Sender: FDA-Public Use
  Company Number: US-PFIZER INC-2015021601

PATIENT
  Age: 49 Year
  Sex: Male
  Weight: 107 kg

DRUGS (2)
  1. DETROL LA [Suspect]
     Active Substance: TOLTERODINE TARTRATE
     Indication: URINARY INCONTINENCE
     Dosage: 4 MG, 1X/DAY
  2. DETROL LA [Suspect]
     Active Substance: TOLTERODINE TARTRATE
     Indication: POLLAKIURIA

REACTIONS (3)
  - Respiratory tract infection [Recovered/Resolved]
  - Respiratory disorder [Recovered/Resolved]
  - Nasopharyngitis [Recovered/Resolved]

NARRATIVE: CASE EVENT DATE: 20150105
